FAERS Safety Report 7843959-2 (Version None)
Quarter: 2011Q4

REPORT INFORMATION
  Report Type: 
  Country: None (occurrence: None)
  Receive Date: 20111025
  Receipt Date: 20111018
  Transmission Date: 20120403
  Serious: Yes (Death, Other)
  Sender: FDA-Public Use
  Company Number: PHHY2011BR92298

PATIENT
  Sex: Female

DRUGS (4)
  1. OMEPRAZOLE [Suspect]
  2. LISINOPRIL [Suspect]
  3. GLIMEPIRIDE [Suspect]
  4. GALVUS [Suspect]
     Dosage: 50 MG

REACTIONS (1)
  - DIABETES MELLITUS [None]
